FAERS Safety Report 7808226-1 (Version None)
Quarter: 2011Q4

REPORT INFORMATION
  Report Type: 
  Country: None (occurrence: None)
  Receive Date: 20111011
  Receipt Date: 20110930
  Transmission Date: 20120403
  Serious: Yes (Hospitalization)
  Sender: FDA-Public Use
  Company Number: US-BRISTOL-MYERS SQUIBB COMPANY-16120982

PATIENT
  Sex: Male

DRUGS (6)
  1. ALLOPURINOL [Concomitant]
     Dosage: 3 DAY PATCH OF ALLOPURINOL
  2. TENORMIN [Concomitant]
  3. SPRYCEL [Suspect]
     Indication: CHRONIC MYELOID LEUKAEMIA
     Dosage: EVERY HOUR
     Dates: start: 20110905
  4. BENADRYL [Concomitant]
  5. FENTANYL-100 [Concomitant]
     Dosage: EVERY HOUR OF SLEEP FENTANYL PATCH 25 MG ---3 DAY PATCH
  6. VICODIN [Concomitant]
     Dosage: VICODIN ES 750 MG ONE TAB EVERY 4-6 HRS

REACTIONS (3)
  - THROAT TIGHTNESS [None]
  - CHEST DISCOMFORT [None]
  - HEADACHE [None]
